FAERS Safety Report 9213098 (Version 2)
Quarter: 2013Q2

REPORT INFORMATION
  Report Type: Spontaneous
  Country: US (occurrence: US)
  Receive Date: 20130405
  Receipt Date: 20130521
  Transmission Date: 20140414
  Serious: No
  Sender: FDA-Public Use
  Company Number: US-PFIZER INC-2013104247

PATIENT
  Sex: Female

DRUGS (1)
  1. TOVIAZ [Suspect]
     Indication: METRORRHAGIA
     Dosage: 4 MG, UNK

REACTIONS (3)
  - Off label use [Unknown]
  - Menorrhagia [Unknown]
  - Therapeutic response unexpected [Unknown]
